FAERS Safety Report 17413753 (Version 1)
Quarter: 2020Q1

REPORT INFORMATION
  Report Type: Report from Study
  Country: US (occurrence: US)
  Receive Date: 20200213
  Receipt Date: 20200213
  Transmission Date: 20200409
  Serious: No
  Sender: FDA-Public Use
  Company Number: NVSC2020US033480

PATIENT
  Sex: Male

DRUGS (2)
  1. AFINITOR [Suspect]
     Active Substance: EVEROLIMUS
     Indication: PARTIAL SEIZURES
     Dosage: 2.5 MG, BID
     Route: 048
  2. AFINITOR [Suspect]
     Active Substance: EVEROLIMUS
     Dosage: 3 MG, QD
     Route: 048
     Dates: start: 20190801

REACTIONS (2)
  - Nausea [Unknown]
  - Abdominal pain upper [Unknown]
